FAERS Safety Report 17139455 (Version 1)
Quarter: 2019Q4

REPORT INFORMATION
  Report Type: Spontaneous
  Country: IT (occurrence: IT)
  Receive Date: 20191211
  Receipt Date: 20191211
  Transmission Date: 20200122
  Serious: Yes (Other)
  Sender: FDA-Public Use
  Company Number: IT-AUROBINDO-AUR-APL-2019-104314

PATIENT
  Age: 46 Year
  Sex: Female

DRUGS (2)
  1. CARBOPLATIN. [Suspect]
     Active Substance: CARBOPLATIN
     Indication: OVARIAN NEOPLASM
     Dosage: 550 MILLIGRAM, CYCLICAL
     Route: 042
     Dates: start: 20190708, end: 20190920
  2. PACLITAXEL. [Suspect]
     Active Substance: PACLITAXEL
     Indication: OVARIAN NEOPLASM
     Dosage: 280 MILLIGRAM, CYCLICAL
     Route: 042
     Dates: start: 20190708, end: 20190920

REACTIONS (5)
  - Chest pain [Recovering/Resolving]
  - Chills [Recovering/Resolving]
  - Severe acute respiratory syndrome [Recovering/Resolving]
  - Cough [Recovering/Resolving]
  - Pyrexia [Recovering/Resolving]

NARRATIVE: CASE EVENT DATE: 20190927
